FAERS Safety Report 5739525-5 (Version None)
Quarter: 2008Q2

REPORT INFORMATION
  Report Type: 
  Country: None (occurrence: None)
  Receive Date: 20080515
  Receipt Date: 20080421
  Transmission Date: 20081010
  Serious: No
  Sender: FDA-Public Use
  Company Number: US-BOEHRINGER INGELHEIM GMBH, GERMANY-2008-BP-06268BP

PATIENT
  Age: 50 Year
  Sex: Male

DRUGS (1)
  1. ZANTAC 150 [Suspect]
     Dates: start: 20080301

REACTIONS (2)
  - ASTHENIA [None]
  - INSOMNIA [None]
